FAERS Safety Report 9917105 (Version 1)
Quarter: 2014Q1

REPORT INFORMATION
  Report Type: Report from Study
  Country: US (occurrence: US)
  Receive Date: 20140221
  Receipt Date: 20140221
  Transmission Date: 20141002
  Serious: Yes (Hospitalization, Other)
  Sender: FDA-Public Use
  Company Number: US-JNJFOC-20140207818

PATIENT
  Sex: Male

DRUGS (12)
  1. XARELTO [Suspect]
     Indication: ANTICOAGULANT THERAPY
     Route: 048
  2. LABETALOL [Suspect]
     Indication: PRODUCT USED FOR UNKNOWN INDICATION
     Route: 065
  3. ATENOLOL [Suspect]
     Indication: PRODUCT USED FOR UNKNOWN INDICATION
     Route: 065
  4. LISINOPRIL [Suspect]
     Indication: PRODUCT USED FOR UNKNOWN INDICATION
     Route: 065
  5. AMLODIPINE [Suspect]
     Indication: PRODUCT USED FOR UNKNOWN INDICATION
     Route: 065
  6. LORTAB [Concomitant]
     Dosage: 7.5 (UNITS UNSPECIFIED) 3 TIMES A DAY
     Route: 065
  7. KLONOPIN [Concomitant]
     Dosage: 7.5 (UNITS UNSPECIFIED) 3 TIMES A DAY
     Route: 065
  8. NEURONTIN [Concomitant]
     Dosage: 7.5 (UNITS UNSPECIFIED) 3 TIMES A DAY
     Route: 065
  9. COZAAR [Concomitant]
     Dosage: 7.5 (UNITS UNSPECIFIED) 3 TIMES A DAY
     Route: 048
  10. LASIX [Concomitant]
     Dosage: 7.5 (UNITS UNSPECIFIED) 3 TIMES A DAY
     Route: 048
  11. ZAROXOLYN [Concomitant]
     Dosage: 7.5 (UNITS UNSPECIFIED) 3 TIMES A DAY
     Route: 065
  12. POTASSIUM [Concomitant]
     Dosage: 7.5 (UNITS UNSPECIFIED) 3 TIMES A DAY
     Route: 048

REACTIONS (2)
  - Renal failure [Recovering/Resolving]
  - Hypotension [Unknown]
